FAERS Safety Report 7798229-8 (Version None)
Quarter: 2011Q4

REPORT INFORMATION
  Report Type: 
  Country: None (occurrence: None)
  Receive Date: 20111005
  Receipt Date: 20110921
  Transmission Date: 20120403
  Serious: Yes (Other)
  Sender: FDA-Public Use
  Company Number: US-PERRIGO-11US007896

PATIENT
  Sex: Female
  Weight: 68.027 kg

DRUGS (1)
  1. NAPROXEN SODIUM [Suspect]
     Indication: HEADACHE
     Dosage: 440 MG, SINGLE
     Route: 048
     Dates: start: 20110919, end: 20110919

REACTIONS (11)
  - HAEMATEMESIS [None]
  - ACCIDENTAL EXPOSURE [None]
  - FUNGAL INFECTION [None]
  - SELF-INDUCED VOMITING [None]
  - OROPHARYNGEAL BLISTERING [None]
  - BLISTER [None]
  - VULVOVAGINAL SWELLING [None]
  - VULVOVAGINAL DISCOMFORT [None]
  - SKIN EXFOLIATION [None]
  - SKIN DISCOLOURATION [None]
  - VAGINAL HAEMORRHAGE [None]
